FAERS Safety Report 18755009 (Version 1)
Quarter: 2021Q1

REPORT INFORMATION
  Report Type: Spontaneous
  Country: DE (occurrence: DE)
  Receive Date: 20210119
  Receipt Date: 20210119
  Transmission Date: 20210419
  Serious: Yes (Other)
  Sender: FDA-Public Use
  Company Number: DE-DRREDDYS-GER/GER/21/0130896

PATIENT
  Age: 85 Year
  Sex: Female
  Weight: 65 kg

DRUGS (1)
  1. CIPROFLOXACIN. [Suspect]
     Active Substance: CIPROFLOXACIN
     Indication: CYSTITIS NONINFECTIVE
     Dosage: STANDARD
     Route: 048
     Dates: start: 20201206, end: 20201206

REACTIONS (2)
  - Necrosis [Recovered/Resolved with Sequelae]
  - Depression [Recovering/Resolving]

NARRATIVE: CASE EVENT DATE: 20201206
